FAERS Safety Report 6762184-X (Version None)
Quarter: 2010Q2

REPORT INFORMATION
  Report Type: 
  Country: None (occurrence: None)
  Receive Date: 20100609
  Receipt Date: 20100413
  Transmission Date: 20101027
  Serious: No
  Sender: FDA-Public Use
  Company Number: US-KINGPHARMUSA00001-K201000447

PATIENT

DRUGS (2)
  1. EMBEDA [Suspect]
     Dosage: 20 MG, BID
  2. EMBEDA [Suspect]
     Dosage: 30 MG, QD

REACTIONS (1)
  - HEADACHE [None]
